FAERS Safety Report 4838352-0 (Version None)
Quarter: 2005Q4

REPORT INFORMATION
  Report Type: 
  Country: None (occurrence: None)
  Receive Date: 20051123
  Receipt Date: 20051114
  Transmission Date: 20060501
  Serious: Yes (Disabling)
  Sender: FDA-Public Use
  Company Number: 2005060061

PATIENT
  Age: 52 Year
  Sex: Female
  Weight: 54.4316 kg

DRUGS (9)
  1. AROMASIN [Suspect]
     Indication: BREAST CANCER
     Dosage: 25 MG (25 MG, DAILY INTERVAL: EVERY DAY), ORAL
     Route: 048
     Dates: start: 20050112, end: 20050413
  2. SYNTHROID [Concomitant]
  3. RETINOL (RETINOL) [Concomitant]
  4. LIPITOR [Concomitant]
  5. ALLEGRA-D 12 HOUR [Concomitant]
  6. CELEBREX [Concomitant]
  7. CLARITIN [Concomitant]
  8. ALBUTEROL [Concomitant]
  9. VITAMIN D [Concomitant]

REACTIONS (1)
  - VISION BLURRED [None]
